FAERS Safety Report 7388007-6 (Version None)
Quarter: 2011Q2

REPORT INFORMATION
  Report Type: 
  Country: None (occurrence: None)
  Receive Date: 20110401
  Receipt Date: 20110328
  Transmission Date: 20111010
  Serious: Yes (Other)
  Sender: FDA-Public Use
  Company Number: BR-ELI_LILLY_AND_COMPANY-BR201103007932

PATIENT
  Sex: Female
  Weight: 75 kg

DRUGS (5)
  1. LEVEMIR [Concomitant]
     Indication: DIABETES MELLITUS
     Dosage: UNK, QD
  2. ENALAPRIL MALEATE [Concomitant]
     Indication: HYPERTENSION
     Dosage: UNK, BID
     Route: 065
  3. EPOGEN [Concomitant]
     Indication: ANAEMIA
     Dosage: UNK, OTHER
     Route: 065
  4. ALLOPURINOL [Concomitant]
     Indication: BLOOD URIC ACID
     Dosage: UNK, QD
     Route: 065
  5. HUMALOG [Suspect]
     Indication: TYPE 1 DIABETES MELLITUS
     Dosage: 30 IU, QD
     Route: 065

REACTIONS (3)
  - BLOOD GLUCOSE INCREASED [None]
  - BLOOD GLUCOSE ABNORMAL [None]
  - EYE OPERATION [None]
